FAERS Safety Report 15772014 (Version 1)
Quarter: 2018Q4

REPORT INFORMATION
  Report Type: Spontaneous
  Country: US (occurrence: US)
  Receive Date: 20181228
  Receipt Date: 20181228
  Transmission Date: 20190205
  Serious: No
  Sender: FDA-Public Use
  Company Number: US-FRESENIUS KABI-FK201813281

PATIENT
  Age: 37 Year
  Weight: 68.18 kg

DRUGS (8)
  1. TESTOSTERONE. [Concomitant]
     Active Substance: TESTOSTERONE
     Indication: IN VITRO FERTILISATION
     Route: 065
  2. ESTRADIOL. [Concomitant]
     Active Substance: ESTRADIOL
     Indication: IN VITRO FERTILISATION
     Route: 065
  3. CHORIONIC GONADOTROPIN [Suspect]
     Active Substance: CHORIOGONADOTROPIN ALFA
     Indication: OVULATION INDUCTION
     Route: 030
     Dates: start: 20181215, end: 20181215
  4. CETRORELIX [Concomitant]
     Active Substance: CETRORELIX
     Indication: IN VITRO FERTILISATION
     Dosage: LAST TAKEN ON 15DEC2018
     Route: 065
  5. FOLLITROPIN BETA [Concomitant]
     Active Substance: FOLLITROPIN
     Indication: IN VITRO FERTILISATION
     Route: 065
  6. MENOTROPHIN [Concomitant]
     Active Substance: MENOTROPINS
     Indication: IN VITRO FERTILISATION
     Route: 065
  7. FOLLITROPIN ALFA [Concomitant]
     Active Substance: FOLLITROPIN
     Indication: IN VITRO FERTILISATION
     Dosage: LAST TAKEN ON 15DEC2018
     Route: 065
  8. WATER FOR INJECTION [Concomitant]
     Active Substance: WATER
     Indication: MEDICATION DILUTION
     Route: 030
     Dates: start: 20181215, end: 20181215

REACTIONS (2)
  - Off label use [Unknown]
  - Drug ineffective [Unknown]

NARRATIVE: CASE EVENT DATE: 20181215
